FAERS Safety Report 19021159 (Version 2)
Quarter: 2021Q1

REPORT INFORMATION
  Report Type: Spontaneous
  Country: US (occurrence: US)
  Receive Date: 20210317
  Receipt Date: 20210323
  Transmission Date: 20210420
  Serious: Yes (Life-Threatening, Other)
  Sender: FDA-Public Use
  Company Number: US-PFIZER INC-2021254181

PATIENT
  Sex: Male
  Weight: 3.89 kg

DRUGS (2)
  1. BUPIVACAINE HCL [Suspect]
     Active Substance: BUPIVACAINE HYDROCHLORIDE
     Dosage: 3 ML (1.87 MG/KG) OF THE SAME BUPIVACAINE SOLUTION AT 1.5 AND 3 H AFTER THE INITIAL BOLUS DOSE
  2. BUPIVACAINE HCL [Suspect]
     Active Substance: BUPIVACAINE HYDROCHLORIDE
     Indication: ANAESTHESIA
     Dosage: 4 ML, 2.5 MG/KG WITH 1:200,000
     Route: 040

REACTIONS (6)
  - Ventricular tachycardia [Recovered/Resolved]
  - Neonatal hypotension [Recovered/Resolved]
  - Generalised tonic-clonic seizure [Recovered/Resolved]
  - Off label use [Unknown]
  - Neonatal toxicity [Recovered/Resolved]
  - Neonatal sinus bradycardia [Recovered/Resolved]
